FAERS Safety Report 4963956-4 (Version None)
Quarter: 2006Q1

REPORT INFORMATION
  Report Type: 
  Country: None (occurrence: None)
  Receive Date: 20060330
  Receipt Date: 20060314
  Transmission Date: 20060701
  Serious: Yes (Other)
  Sender: FDA-Public Use
  Company Number: DSA_27904_2006

PATIENT
  Sex: Female

DRUGS (3)
  1. CARDIZEM [Suspect]
     Dosage: DF
     Dates: start: 20010101, end: 20010101
  2. PREMARIN [Concomitant]
  3. VITAMIN E [Concomitant]

REACTIONS (2)
  - MITRAL VALVE DISEASE [None]
  - PALPITATIONS [None]
